FAERS Safety Report 10763262 (Version 1)
Quarter: 2015Q1

REPORT INFORMATION
  Report Type: Spontaneous
  Country: IT (occurrence: IT)
  Receive Date: 20150204
  Receipt Date: 20150204
  Transmission Date: 20150721
  Serious: Yes (Hospitalization)
  Sender: FDA-Public Use
  Company Number: IT-NOVOPROD-436772

PATIENT
  Age: 81 Year
  Sex: Male

DRUGS (6)
  1. NOVOMIX 50 FLEXPEN [Suspect]
     Active Substance: INSULIN ASPART
     Indication: TYPE 2 DIABETES MELLITUS
     Dosage: 30 IU/DIE
     Route: 058
     Dates: start: 20130101
  2. NOVOMIX 70 FLEXPEN [Suspect]
     Active Substance: INSULIN ASPART
     Indication: TYPE 2 DIABETES MELLITUS
     Dosage: UNK
     Route: 058
     Dates: start: 20130101
  3. GLICLAZIDE [Concomitant]
     Active Substance: GLICLAZIDE
     Indication: TYPE 2 DIABETES MELLITUS
     Dosage: 30 ?G/DIE
     Route: 048
     Dates: start: 20141025
  4. ESOMEPRAZOLO [Concomitant]
     Indication: CHRONIC GASTRITIS
     Dosage: 20 MG
     Route: 048
     Dates: start: 20130101
  5. LANOXIN [Concomitant]
     Active Substance: DIGOXIN
     Indication: CARDIAC DISORDER
     Dosage: 0.12  MG
     Route: 048
     Dates: start: 20130101
  6. CARDIOASPIRIN [Concomitant]
     Active Substance: ASPIRIN
     Indication: THROMBOSIS PROPHYLAXIS
     Dosage: 100 MG
     Route: 048
     Dates: start: 20130101

REACTIONS (6)
  - Vertigo [Recovered/Resolved]
  - Joint injury [None]
  - Atonic seizures [Recovered/Resolved]
  - Medication error [None]
  - Hypoglycaemia [Recovered/Resolved]
  - Fall [None]

NARRATIVE: CASE EVENT DATE: 20141125
